FAERS Safety Report 7801398-4 (Version None)
Quarter: 2011Q4

REPORT INFORMATION
  Report Type: 
  Country: None (occurrence: None)
  Receive Date: 20111007
  Receipt Date: 20110926
  Transmission Date: 20120403
  Serious: Yes (Hospitalization)
  Sender: FDA-Public Use
  Company Number: US-BAYER-2011-080740

PATIENT
  Age: 49 Year
  Sex: Female

DRUGS (5)
  1. OXYCODONE HCL AND ACETAMINOPHEN [Concomitant]
     Dosage: 5-325 MG
     Route: 048
     Dates: start: 20090625
  2. YAZ [Suspect]
     Indication: CONTRACEPTION
     Dosage: UNK
     Dates: start: 20071001, end: 20090901
  3. MULTI-VITAMIN [Concomitant]
     Dosage: DAILY
  4. LEVAQUIN [Concomitant]
     Dosage: 500 MG, UNK
     Route: 048
     Dates: start: 20090728
  5. CEPHALEXIN [Concomitant]
     Dosage: 500 MG, UNK
     Route: 048
     Dates: start: 20090625, end: 20090801

REACTIONS (10)
  - INJURY [None]
  - PULMONARY THROMBOSIS [None]
  - ANXIETY [None]
  - BACK PAIN [None]
  - DYSPNOEA [None]
  - PULMONARY EMBOLISM [None]
  - FEAR [None]
  - DEEP VEIN THROMBOSIS [None]
  - POOR QUALITY SLEEP [None]
  - EMOTIONAL DISTRESS [None]
